FAERS Safety Report 6023028-7 (Version None)
Quarter: 2008Q4

REPORT INFORMATION
  Report Type: 
  Country: None (occurrence: None)
  Receive Date: 20081222
  Receipt Date: 20080916
  Transmission Date: 20090506
  Serious: No
  Sender: FDA-Public Use
  Company Number: ALL1-2008-02640

PATIENT
  Age: 15 Year
  Sex: Female
  Weight: 48.5 kg

DRUGS (1)
  1. VYVANSE [Suspect]
     Indication: ATTENTION DEFICIT/HYPERACTIVITY DISORDER
     Dosage: 30 MG, 1X/DAY:QD, ORAL
     Route: 048
     Dates: start: 20080912, end: 20080912

REACTIONS (7)
  - ABDOMINAL PAIN [None]
  - AGITATION [None]
  - IRRITABILITY [None]
  - OFF LABEL USE [None]
  - PERSONALITY CHANGE [None]
  - SEDATION [None]
  - TREMOR [None]
